FAERS Safety Report 7009219-7 (Version None)
Quarter: 2010Q3

REPORT INFORMATION
  Report Type: 
  Country: None (occurrence: None)
  Receive Date: 20100921
  Receipt Date: 20100818
  Transmission Date: 20110219
  Serious: Yes (Hospitalization, Other)
  Sender: FDA-Public Use
  Company Number: 2010080020

PATIENT
  Age: 73 Year
  Sex: Male

DRUGS (30)
  1. DEMADEX [Suspect]
     Indication: HYPERTENSION
     Dosage: 10 MG (10 MG, 1 IN 1 D), ORAL
     Route: 048
     Dates: start: 20050101, end: 20100101
  2. BENICAR [Suspect]
     Indication: HYPERTENSION
     Dosage: 20 MG (20 MG, 1 IN 1 D), ORAL
     Route: 048
     Dates: start: 20071001, end: 20100101
  3. CORDARONE [Suspect]
     Indication: VENTRICULAR TACHYCARDIA
     Dosage: 600 MG (200 MG, 3 IN 1 D), ORAL
     Route: 048
     Dates: start: 20100519, end: 20100528
  4. SYNTHROID [Concomitant]
  5. VITAMIN B12 [Concomitant]
  6. ACETAMINOPHEN [Concomitant]
  7. FLUOCINONIDE CREAM (FLUOCINONIDE) [Concomitant]
  8. FEXOFENADINE HCL [Concomitant]
  9. HYDROMORPHONE HCL [Concomitant]
  10. GAS-X (SIMETHICONE) [Concomitant]
  11. MYLANTA (ALUMINUM HYDROXIDE, CALCIUM CARBONATE, MAGNESIUM HYDROXIDE, S [Concomitant]
  12. PRILOSEC (OMEPRAZOLE) [Concomitant]
  13. HYDROCODONE (HYDROCODONE BITATRATE) [Concomitant]
  14. CLARITIN [Concomitant]
  15. MUCINEX [Concomitant]
  16. IPRATROPIUM BROMIDE [Concomitant]
  17. SKELXAIN (METAXALONE) [Concomitant]
  18. SUCRALFATE [Concomitant]
  19. MIRALAX [Concomitant]
  20. LEVAQUIN [Concomitant]
  21. LOPRESSOR [Concomitant]
  22. FLAGYL [Concomitant]
  23. ATIVAN [Concomitant]
  24. DARVOCET-N (DEXTROPROPOXYPHENE, PARACETAMOL) [Concomitant]
  25. ALBUTEROL [Concomitant]
  26. PROTONIX [Concomitant]
  27. INSULIN (INSULIN) [Concomitant]
  28. COSYNTROPIN (COSYNTROPIN) [Concomitant]
  29. LEVOTHYROID (LEVOTHYROXINE SODIUM) [Concomitant]
  30. PIRFENIDONE (PIRFENIDONE) [Concomitant]

REACTIONS (16)
  - DEHYDRATION [None]
  - DIARRHOEA [None]
  - DIVERTICULITIS [None]
  - ELECTROCARDIOGRAM QT PROLONGED [None]
  - FAECAL INCONTINENCE [None]
  - HYPOXIA [None]
  - IDIOPATHIC PULMONARY FIBROSIS [None]
  - MYOCARDIAL INFARCTION [None]
  - NON-SMALL CELL LUNG CANCER METASTATIC [None]
  - ORTHOSTATIC HYPOTENSION [None]
  - PERICARDIAL EFFUSION [None]
  - PNEUMOMEDIASTINUM [None]
  - PNEUMONIA [None]
  - SYNCOPE [None]
  - URINARY INCONTINENCE [None]
  - VENTRICULAR EXTRASYSTOLES [None]
